FAERS Safety Report 19173745 (Version 1)
Quarter: 2021Q2

REPORT INFORMATION
  Report Type: Spontaneous
  Country: CN (occurrence: CN)
  Receive Date: 20210423
  Receipt Date: 20210423
  Transmission Date: 20210717
  Serious: Yes (Other)
  Sender: FDA-Public Use
  Company Number: CN-ROCHE-2815945

PATIENT
  Age: 56 Year
  Sex: Female
  Weight: 60 kg

DRUGS (4)
  1. CARBOPLATIN. [Suspect]
     Active Substance: CARBOPLATIN
     Indication: CYTOREDUCTIVE SURGERY
     Route: 041
     Dates: start: 20210302, end: 20210302
  2. GEMCITABINE HYDROCHLORIDE. [Suspect]
     Active Substance: GEMCITABINE HYDROCHLORIDE
     Route: 041
     Dates: start: 20210309
  3. AVASTIN [Suspect]
     Active Substance: BEVACIZUMAB
     Indication: CYTOREDUCTIVE SURGERY
     Route: 041
     Dates: start: 20210302
  4. GEMCITABINE HYDROCHLORIDE. [Suspect]
     Active Substance: GEMCITABINE HYDROCHLORIDE
     Indication: CYTOREDUCTIVE SURGERY
     Route: 041
     Dates: start: 20210302, end: 20210302

REACTIONS (3)
  - Platelet count decreased [Recovered/Resolved]
  - Myelosuppression [Unknown]
  - Off label use [Unknown]

NARRATIVE: CASE EVENT DATE: 20210315
